FAERS Safety Report 8556743-1 (Version None)
Quarter: 2012Q3

REPORT INFORMATION
  Report Type: 
  Country: None (occurrence: None)
  Receive Date: 20120719
  Receipt Date: 20120713
  Transmission Date: 20120928
  Serious: Yes (Hospitalization, Congenital Anomaly, Other)
  Sender: FDA-Public Use
  Company Number: GER/GER/12/0025054

PATIENT
  Sex: Male
  Weight: 2.715 kg

DRUGS (3)
  1. ACYCLOVIR SODIUM [Concomitant]
  2. LEVOTHYROXINE SODIUM [Concomitant]
  3. VENLAFAXINE HCL [Suspect]
     Indication: PRODUCT USED FOR UNKNOWN INDICATION
     Dosage: 150 MG, 1 D, TRANSPLACENTAL
     Route: 064

REACTIONS (4)
  - TALIPES [None]
  - EXPOSURE DURING BREAST FEEDING [None]
  - HYPOTHERMIA NEONATAL [None]
  - MATERNAL DRUGS AFFECTING FOETUS [None]
